FAERS Safety Report 10245326 (Version 2)
Quarter: 2014Q3

REPORT INFORMATION
  Report Type: Spontaneous
  Country: FI (occurrence: FI)
  Receive Date: 20140618
  Receipt Date: 20140711
  Transmission Date: 20150326
  Serious: Yes (Other)
  Sender: FDA-Public Use
  Company Number: FI-ROCHE-1420471

PATIENT
  Age: 57 Year
  Sex: Female

DRUGS (2)
  1. KADCYLA [Suspect]
     Active Substance: ADO-TRASTUZUMAB EMTANSINE
     Dosage: RECEIVED 4 CYCLES
     Route: 042
     Dates: start: 20140502, end: 20140607
  2. KADCYLA [Suspect]
     Active Substance: ADO-TRASTUZUMAB EMTANSINE
     Indication: HER-2 POSITIVE BREAST CANCER
     Dosage: RECEIVED ONE CYCLE
     Route: 042
     Dates: start: 20140411, end: 20140411

REACTIONS (2)
  - Alanine aminotransferase increased [Not Recovered/Not Resolved]
  - HER-2 positive breast cancer [Unknown]

NARRATIVE: CASE EVENT DATE: 20140416
